FAERS Safety Report 16912102 (Version 2)
Quarter: 2019Q4

REPORT INFORMATION
  Report Type: Spontaneous
  Country: US (occurrence: US)
  Receive Date: 20191014
  Receipt Date: 20191126
  Transmission Date: 20200122
  Serious: No
  Sender: FDA-Public Use
  Company Number: US-ALK-ABELLO A/S-2019AA003260

PATIENT

DRUGS (4)
  1. STAE BULK 238 [Suspect]
     Active Substance: CYNODON DACTYLON POLLEN
     Indication: IMMUNE TOLERANCE INDUCTION
     Dosage: 0.02 MILLILITER
     Route: 058
     Dates: start: 20190911
  2. STAE BULK 504 [Suspect]
     Active Substance: DERMATOPHAGOIDES FARINAE
     Indication: IMMUNE TOLERANCE INDUCTION
     Dosage: 0.02 MILLILITER
     Route: 058
     Dates: start: 20190911
  3. STAE BULK 503 [Suspect]
     Active Substance: DERMATOPHAGOIDES PTERONYSSINUS
     Indication: IMMUNE TOLERANCE INDUCTION
     Dosage: 0.02 MILLILITER
     Route: 058
     Dates: start: 20190911
  4. STERILE DILUENT FOR ALLERGENIC EXTRACT NOS [Suspect]
     Active Substance: ALBUMIN HUMAN OR GLYCERIN OR PHENOL
     Indication: IMMUNE TOLERANCE INDUCTION
     Dosage: 0.02 MILLILITER
     Route: 058
     Dates: start: 20190911

REACTIONS (1)
  - Rash pruritic [Recovered/Resolved]
